FAERS Safety Report 25000816 (Version 4)
Quarter: 2025Q2

REPORT INFORMATION
  Report Type: Spontaneous
  Country: US (occurrence: US)
  Receive Date: 20250222
  Receipt Date: 20250619
  Transmission Date: 20250716
  Serious: Yes (Other)
  Sender: SANOFI AVENTIS
  Company Number: US-SA-2025SA049441

PATIENT
  Age: 77 Year
  Sex: Female

DRUGS (2)
  1. DUPIXENT [Suspect]
     Active Substance: DUPILUMAB
     Indication: Eczema
     Route: 058
     Dates: start: 20250205, end: 20250205
  2. DUPIXENT [Suspect]
     Active Substance: DUPILUMAB
     Dosage: 300 MG, QOW
     Route: 058
     Dates: start: 202502

REACTIONS (10)
  - Pulmonary oedema [Unknown]
  - Pulmonary pain [Unknown]
  - Cough [Unknown]
  - Pleurisy [Unknown]
  - Fungal infection [Unknown]
  - Flatulence [Unknown]
  - Chest discomfort [Unknown]
  - Injection site pain [Recovered/Resolved]
  - Eczema [Recovered/Resolved]
  - Pruritus [Recovered/Resolved]

NARRATIVE: CASE EVENT DATE: 20250101
